FAERS Safety Report 20902321 (Version 1)
Quarter: 2022Q2

REPORT INFORMATION
  Report Type: Spontaneous
  Country: GB (occurrence: GB)
  Receive Date: 20220601
  Receipt Date: 20220601
  Transmission Date: 20220721
  Serious: No
  Sender: FDA-Public Use
  Company Number: GB-002147023-NVSC2022GB119758

PATIENT
  Sex: Female

DRUGS (3)
  1. ONDANSETRON [Suspect]
     Active Substance: ONDANSETRON
     Indication: Product used for unknown indication
     Dosage: UNK UNK, BID (PRN), STRENGTH:8 MG
     Route: 065
  2. ACYCLOVIR [Suspect]
     Active Substance: ACYCLOVIR
     Indication: Product used for unknown indication
     Dosage: UNK, TID, STRENGTH: 200 MG
     Route: 065
  3. RYDAPT [Suspect]
     Active Substance: MIDOSTAURIN
     Indication: Product used for unknown indication
     Dosage: UNK UNK, BID, CAPSULE, SOFT, STRENGTH: 50 MG
     Route: 065

REACTIONS (3)
  - Asthenia [Unknown]
  - Incorrect dose administered [Unknown]
  - Diarrhoea [Unknown]
